FAERS Safety Report 9346676 (Version 10)
Quarter: 2014Q2

REPORT INFORMATION
  Report Type: Spontaneous
  Country: US (occurrence: US)
  Receive Date: 20130613
  Receipt Date: 20140625
  Transmission Date: 20141212
  Serious: No
  Sender: FDA-Public Use
  Company Number: US-PFIZER INC-2013174593

PATIENT
  Age: 82 Year
  Sex: Female
  Weight: 54.88 kg

DRUGS (5)
  1. SUTENT [Suspect]
     Indication: CERVIX CARCINOMA
     Dosage: 50 MG, CYCLIC (1 X 28 DAYS)
     Route: 048
     Dates: start: 20121222, end: 20130908
  2. SUTENT [Suspect]
     Dosage: 50 MG, CYCLIC
     Route: 048
     Dates: start: 20130922, end: 20131212
  3. SUTENT [Suspect]
     Dosage: 50 MG, 1X/DAY (QD X 28 DAYS X 14 DAYS OFF)
     Route: 048
     Dates: start: 20130303, end: 201401
  4. SUTENT [Suspect]
     Dosage: 50 MG, 1X/DAY
     Route: 048
     Dates: start: 20131001
  5. CALCIUM [Concomitant]
     Dosage: UNK

REACTIONS (5)
  - Nervousness [Unknown]
  - Diarrhoea [Not Recovered/Not Resolved]
  - Malaise [Unknown]
  - Decreased appetite [Unknown]
  - Off label use [Unknown]
